FAERS Safety Report 9661762 (Version 1)
Quarter: 2013Q4

REPORT INFORMATION
  Report Type: Spontaneous
  Country: GB (occurrence: None)
  Receive Date: 20131030
  Receipt Date: 20131030
  Transmission Date: 20140711
  Serious: Yes (Other)
  Sender: FDA-Public Use
  Company Number: AUR-APL-2013-08975

PATIENT
  Age: 9 Year
  Sex: Female

DRUGS (3)
  1. LEVETIRACETAM [Suspect]
     Indication: FRONTAL LOBE EPILEPSY
  2. OXCARBAZEPINE [Suspect]
     Indication: FRONTAL LOBE EPILEPSY
  3. CLOBAZAM (CLOBAZAM) [Suspect]
     Indication: FRONTAL LOBE EPILEPSY

REACTIONS (2)
  - Epilepsy [None]
  - Drug ineffective [None]
